FAERS Safety Report 15966422 (Version 1)
Quarter: 2019Q1

REPORT INFORMATION
  Report Type: Spontaneous
  Country: US (occurrence: US)
  Receive Date: 20190215
  Receipt Date: 20190215
  Transmission Date: 20190418
  Serious: Yes (Death, Other)
  Sender: FDA-Public Use
  Company Number: US-TEVA-2019-US-1011319

PATIENT
  Sex: Male
  Weight: 71.73 kg

DRUGS (2)
  1. WARFARIN [Suspect]
     Active Substance: WARFARIN
     Route: 065
  2. REVATIO [Suspect]
     Active Substance: SILDENAFIL CITRATE
     Indication: ARRHYTHMIA
     Dosage: 60 MILLIGRAM DAILY;
     Route: 048

REACTIONS (6)
  - Ventricular septal defect [Fatal]
  - Atrial fibrillation [Fatal]
  - Anaemia [Unknown]
  - Chronic kidney disease [Unknown]
  - Cardiac failure congestive [Fatal]
  - Lower gastrointestinal haemorrhage [Unknown]

NARRATIVE: CASE EVENT DATE: 2006
